FAERS Safety Report 15484212 (Version 1)
Quarter: 2018Q4

REPORT INFORMATION
  Report Type: Spontaneous
  Country: DE (occurrence: DE)
  Receive Date: 20181010
  Receipt Date: 20181010
  Transmission Date: 20190205
  Serious: Yes (Death, Life-Threatening)
  Sender: FDA-Public Use
  Company Number: DE-MYLANLABS-2018M1074531

PATIENT
  Age: 62 Year
  Sex: Male

DRUGS (5)
  1. REMERGIL [Concomitant]
     Active Substance: MIRTAZAPINE
     Indication: PRODUCT USED FOR UNKNOWN INDICATION
     Dosage: 15 MG, QD, 23.11.-29.11.
  2. CITALOPRAM [Suspect]
     Active Substance: CITALOPRAM HYDROBROMIDE
     Indication: PRODUCT USED FOR UNKNOWN INDICATION
     Dosage: 10 MG, QD
     Dates: end: 20100114
  3. REMERGIL [Concomitant]
     Active Substance: MIRTAZAPINE
     Dosage: 45 MG, QD, 28.12. FORTLAUFEND
  4. LORAZEPAM. [Concomitant]
     Active Substance: LORAZEPAM
     Indication: PRODUCT USED FOR UNKNOWN INDICATION
     Dosage: 0.5 MG, QD,
  5. REMERGIL [Concomitant]
     Active Substance: MIRTAZAPINE
     Dosage: 30 MG, QD, 30.11.-27.12.

REACTIONS (1)
  - Completed suicide [Fatal]

NARRATIVE: CASE EVENT DATE: 20100114
